FAERS Safety Report 21493236 (Version 1)
Quarter: 2022Q4

REPORT INFORMATION
  Report Type: Other
  Country: CN (occurrence: None)
  Receive Date: 20221021
  Receipt Date: 20221021
  Transmission Date: 20230112
  Serious: Yes (Other)
  Sender: FDA-Public Use
  Company Number: CN-ROCHE-3203379

PATIENT

DRUGS (3)
  1. BEVACIZUMAB [Suspect]
     Active Substance: BEVACIZUMAB
     Indication: Non-small cell lung cancer
     Dosage: IT WAS MIXED WITH 100 ML OF PHYSIOLOGICAL SODIUM CHLORIDE SOLUTION AND ADMINISTERED ON THE FIRST DAY
     Route: 065
  2. PACLITAXEL [Suspect]
     Active Substance: PACLITAXEL
     Indication: Non-small cell lung cancer
     Dosage: 500 ML OF 5% GLUCOSE SOLUTION WAS MIXED AND ADMINISTERED ON DAYS 1 AND 8, RESPECTIVELY, FOR ABOUT 3
     Route: 041
  3. CISPLATIN [Suspect]
     Active Substance: CISPLATIN
     Indication: Non-small cell lung cancer
     Dosage: MIX WELL WITH 250 ML OF PHYSIOLOGICAL SODIUM CHLORIDE SOLUTION AND ADMINISTER ON DAYS 1 TO 3, FOR AB
     Route: 041

REACTIONS (1)
  - Myelosuppression [Unknown]
